FAERS Safety Report 8131953-6 (Version None)
Quarter: 2012Q1

REPORT INFORMATION
  Report Type: 
  Country: None (occurrence: None)
  Receive Date: 20120207
  Receipt Date: 20120123
  Transmission Date: 20120608
  Serious: Yes (Death, Hospitalization)
  Sender: FDA-Public Use
  Company Number: UTC-013758

PATIENT
  Age: 74 Year
  Sex: Male
  Weight: 93.6 kg

DRUGS (3)
  1. LETAIRIS [Concomitant]
  2. TYVASO [Suspect]
     Indication: PULMONARY ARTERIAL HYPERTENSION
     Dosage: 72 MCG (18 MCG, 4 IN 1 D), INHALATION
     Route: 055
     Dates: start: 20110708
  3. DIURETICS (DIURETICS) [Concomitant]

REACTIONS (1)
  - MULTI-ORGAN FAILURE [None]
